FAERS Safety Report 17513862 (Version 2)
Quarter: 2020Q2

REPORT INFORMATION
  Report Type: Report from Study
  Country: US (occurrence: US)
  Receive Date: 20200306
  Receipt Date: 20200609
  Transmission Date: 20200713
  Serious: Yes (Other)
  Sender: FDA-Public Use
  Company Number: NVSC2020US064394

PATIENT
  Age: 11 Year
  Sex: Male

DRUGS (1)
  1. JADENU [Suspect]
     Active Substance: DEFERASIROX
     Indication: PRODUCT USED FOR UNKNOWN INDICATION
     Dosage: UNK
     Route: 065
     Dates: start: 20140514

REACTIONS (4)
  - Cholelithiasis [Unknown]
  - Vomiting [Unknown]
  - Epstein-Barr virus infection reactivation [Unknown]
  - Nausea [Unknown]

NARRATIVE: CASE EVENT DATE: 20140704
